FAERS Safety Report 14677926 (Version 6)
Quarter: 2020Q4

REPORT INFORMATION
  Report Type: Spontaneous
  Country: US (occurrence: US)
  Receive Date: 20180326
  Receipt Date: 20201230
  Transmission Date: 20210113
  Serious: No
  Sender: FDA-Public Use
  Company Number: US-LUPIN PHARMACEUTICALS INC.-2018-01018

PATIENT
  Age: 68 Year
  Sex: Female
  Weight: 93.42 kg

DRUGS (13)
  1. HYDROCODONE BITARTRATE AND ACETAMINOPHEN [Suspect]
     Active Substance: ACETAMINOPHEN\HYDROCODONE BITARTRATE
     Indication: BACK PAIN
     Dosage: 1 DOSAGE FORM, QD
     Route: 048
     Dates: start: 2006
  2. HYDROCODONE BITARTRATE AND ACETAMINOPHEN [Suspect]
     Active Substance: ACETAMINOPHEN\HYDROCODONE BITARTRATE
     Dosage: 1 DOSAGE FORM (EVERY 4-6 HOURS)
     Route: 065
     Dates: start: 20200808
  3. GLIPIZIDE. [Concomitant]
     Active Substance: GLIPIZIDE
     Indication: DIABETES MELLITUS
     Dosage: UNK
     Route: 065
  4. JANUMET [Concomitant]
     Active Substance: METFORMIN HYDROCHLORIDE\SITAGLIPTIN PHOSPHATE
     Indication: DIABETES MELLITUS
     Dosage: UNK
     Route: 065
  5. HYDROCODONE BITARTRATE AND ACETAMINOPHEN [Suspect]
     Active Substance: ACETAMINOPHEN\HYDROCODONE BITARTRATE
     Dosage: 1 DOSAGE FORM, EVERY 6 HOURS
     Route: 048
     Dates: start: 20191127
  6. HYDROCODONE BITARTRATE AND ACETAMINOPHEN [Suspect]
     Active Substance: ACETAMINOPHEN\HYDROCODONE BITARTRATE
     Indication: SPINAL STENOSIS
     Dosage: 1 DOSAGE FORM, QD
     Route: 048
     Dates: start: 2017
  7. GABAPENTIN. [Concomitant]
     Active Substance: GABAPENTIN
     Indication: RESTLESS LEGS SYNDROME
     Dosage: UNK
     Route: 065
  8. CLARITIN-D NOS [Concomitant]
     Active Substance: LORATADINE\PSEUDOEPHEDRINE SULFATE
     Indication: SEASONAL ALLERGY
     Dosage: UNK
     Route: 065
  9. HYDROCODONE BITARTRATE AND ACETAMINOPHEN [Suspect]
     Active Substance: ACETAMINOPHEN\HYDROCODONE BITARTRATE
     Indication: NEUROPATHY PERIPHERAL
     Dosage: 1 DOSAGE FORM, TID
     Route: 048
     Dates: start: 20171109
  10. HYDROCODONE BITARTRATE AND ACETAMINOPHEN [Suspect]
     Active Substance: ACETAMINOPHEN\HYDROCODONE BITARTRATE
     Indication: PAIN
     Dosage: 1 DOSAGE FORM, BID
     Route: 048
     Dates: start: 20180204
  11. HYDROCODONE BITARTRATE AND ACETAMINOPHEN [Suspect]
     Active Substance: ACETAMINOPHEN\HYDROCODONE BITARTRATE
     Dosage: 1 DOSAGE FORM, QID
     Route: 048
     Dates: start: 20180826
  12. DEMADEX [Concomitant]
     Active Substance: TORSEMIDE
     Indication: DIURETIC THERAPY
     Dosage: UNK
     Route: 065
  13. PROVENTIL [Concomitant]
     Active Substance: ALBUTEROL
     Indication: ASTHMA
     Dosage: UNK, INHALER
     Route: 065

REACTIONS (8)
  - Tremor [Not Recovered/Not Resolved]
  - Therapeutic product effect incomplete [Unknown]
  - Drug ineffective [Unknown]
  - Paraesthesia [Not Recovered/Not Resolved]
  - Pain [Not Recovered/Not Resolved]
  - Agitation [Not Recovered/Not Resolved]
  - Inappropriate schedule of product administration [Unknown]
  - Product availability issue [Unknown]

NARRATIVE: CASE EVENT DATE: 2017
